FAERS Safety Report 7717324-2 (Version None)
Quarter: 2011Q3

REPORT INFORMATION
  Report Type: 
  Country: None (occurrence: None)
  Receive Date: 20110819
  Receipt Date: 20110708
  Transmission Date: 20111222
  Serious: Yes (Other)
  Sender: FDA-Public Use
  Company Number: 11-179C

PATIENT
  Age: 59 Year
  Sex: Female
  Weight: 59.4212 kg

DRUGS (7)
  1. ZYRTEC [Suspect]
     Dosage: 10 MG, DAILY, ORAL
     Route: 048
     Dates: start: 20110706, end: 20110707
  2. SINGULAIR [Concomitant]
  3. PEPCID AC 10 MG (2 TABLETS, BID) [Concomitant]
  4. PREDNISONE (USED AS DIRECTED) [Concomitant]
  5. ALBUTEROL INHALER (PRN) [Concomitant]
  6. EPIPEN (PRN) [Concomitant]
  7. DIPHENHYDRAMIN (1 AS NEEDED) [Concomitant]

REACTIONS (1)
  - HYPERSENSITIVITY [None]
